FAERS Safety Report 6503424-1 (Version None)
Quarter: 2009Q4

REPORT INFORMATION
  Report Type: 
  Country: None (occurrence: None)
  Receive Date: 20091217
  Receipt Date: 20091207
  Transmission Date: 20100525
  Serious: Yes (Other)
  Sender: FDA-Public Use
  Company Number: FR-PFIZER INC-2009307219

PATIENT
  Age: 45 Year
  Sex: Female

DRUGS (2)
  1. CEFPODOXIME PROXETIL [Suspect]
     Indication: TRACHEITIS
     Dosage: 100 MG, DAILY
     Route: 048
     Dates: start: 20091113, end: 20091120
  2. SOLUPRED [Concomitant]
     Indication: TRACHEITIS
     Dosage: UNK
     Dates: start: 20091113, end: 20091120

REACTIONS (3)
  - ARTHRALGIA [None]
  - MYALGIA [None]
  - SERUM SICKNESS [None]
